FAERS Safety Report 5797567-8 (Version None)
Quarter: 2008Q3

REPORT INFORMATION
  Report Type: 
  Country: None (occurrence: None)
  Receive Date: 20080702
  Receipt Date: 20080701
  Transmission Date: 20090109
  Serious: Yes (Other)
  Sender: FDA-Public Use
  Company Number: US-RANBAXY-2008US-15745

PATIENT

DRUGS (1)
  1. CEPHALEXIN [Suspect]
     Indication: BACTERIAL INFECTION
     Dosage: 500 MG, BID
     Route: 048
     Dates: start: 20080604

REACTIONS (3)
  - POLLAKIURIA [None]
  - SLEEP DISORDER [None]
  - WEIGHT DECREASED [None]
